FAERS Safety Report 9744611 (Version 2)
Quarter: 2014Q1

REPORT INFORMATION
  Report Type: Report from Study
  Country: JP (occurrence: JP)
  Receive Date: 20131210
  Receipt Date: 20140103
  Transmission Date: 20141002
  Serious: Yes (Other)
  Sender: FDA-Public Use
  Company Number: JP-ASTRAZENECA-2013SE89349

PATIENT
  Age: 78 Year
  Sex: Female
  Weight: 56 kg

DRUGS (14)
  1. SYMBICORT TURBUHALER [Suspect]
     Indication: ASTHMA
     Route: 055
  2. SYMBICORT TURBUHALER [Suspect]
     Indication: ASTHMA
     Dosage: DOSE REDUCED
     Route: 055
     Dates: start: 20130820, end: 20131027
  3. SYMBICORT TURBUHALER [Suspect]
     Indication: ASTHMA
     Dosage: DOSE INCREASED
     Route: 055
     Dates: start: 20131028
  4. KIPRES [Concomitant]
     Indication: ASTHMA
     Route: 048
  5. OKILOT [Concomitant]
     Indication: RHINITIS ALLERGIC
     Route: 048
  6. SEIBULE [Concomitant]
     Indication: DIABETES MELLITUS
     Route: 048
  7. CYMBALTA [Concomitant]
     Indication: DIABETIC NEUROPATHY
     Route: 048
  8. LASIX [Concomitant]
     Indication: CARDIAC FAILURE CHRONIC
     Route: 048
  9. ALDACTONE A [Concomitant]
     Indication: CARDIAC FAILURE CHRONIC
     Route: 048
     Dates: end: 20130919
  10. TAKEPRON [Concomitant]
     Indication: GASTROOESOPHAGEAL REFLUX DISEASE
     Route: 048
  11. PROMAC [Concomitant]
     Indication: GASTROOESOPHAGEAL REFLUX DISEASE
     Route: 048
  12. KOLANTYL [Concomitant]
     Indication: IRRITABLE BOWEL SYNDROME
     Route: 048
  13. BIOFERMIN [Concomitant]
     Indication: IRRITABLE BOWEL SYNDROME
     Route: 048
  14. HALCION [Concomitant]
     Indication: INSOMNIA
     Route: 048

REACTIONS (3)
  - Asthma [Recovered/Resolved]
  - Cardiac failure [Recovered/Resolved]
  - Hyperkalaemia [Recovered/Resolved]
